FAERS Safety Report 6034583-5 (Version None)
Quarter: 2009Q1

REPORT INFORMATION
  Report Type: 
  Country: None (occurrence: None)
  Receive Date: 20090112
  Receipt Date: 20090105
  Transmission Date: 20090719
  Serious: Yes (Death)
  Sender: FDA-Public Use
  Company Number: US-MERCK-0901USA00975

PATIENT
  Age: 49 Year
  Sex: Female

DRUGS (2)
  1. PRINZIDE [Suspect]
     Route: 048
  2. METFORMIN [Suspect]
     Route: 048

REACTIONS (2)
  - COMPLETED SUICIDE [None]
  - OVERDOSE [None]
